FAERS Safety Report 10462914 (Version 1)
Quarter: 2014Q3

REPORT INFORMATION
  Report Type: Spontaneous
  Country: IT (occurrence: IT)
  Receive Date: 20140918
  Receipt Date: 20140918
  Transmission Date: 20150326
  Serious: Yes (Life-Threatening)
  Sender: FDA-Public Use
  Company Number: IT-ASTRAZENECA-2014SE69623

PATIENT
  Age: 17768 Day
  Sex: Male

DRUGS (8)
  1. MERREM [Suspect]
     Active Substance: MEROPENEM
     Route: 042
     Dates: start: 20140807, end: 20140821
  2. GENTALYN [Suspect]
     Active Substance: GENTAMICIN SULFATE
     Dosage: 80MG/2ML, 4 DF DAILY
     Route: 042
     Dates: start: 20140807, end: 20140821
  3. CARDIOASPIRIN [Concomitant]
     Active Substance: ASPIRIN
  4. PHENOBARBITAL. [Concomitant]
     Active Substance: PHENOBARBITAL
  5. CLEXANE [Concomitant]
     Active Substance: ENOXAPARIN SODIUM
     Dosage: 4000 UI AXA/0.4ML SOLUTION FOR INJECTION
  6. BIOSOPROLOL [Concomitant]
  7. LASIX [Concomitant]
     Active Substance: FUROSEMIDE
     Dosage: 20MG/2ML
  8. LIORESAL [Concomitant]
     Active Substance: BACLOFEN

REACTIONS (2)
  - Coma [Not Recovered/Not Resolved]
  - Clostridium difficile colitis [Not Recovered/Not Resolved]

NARRATIVE: CASE EVENT DATE: 20140911
